FAERS Safety Report 25053893 (Version 2)
Quarter: 2025Q2

REPORT INFORMATION
  Report Type: Spontaneous
  Country: US (occurrence: US)
  Receive Date: 20250307
  Receipt Date: 20250624
  Transmission Date: 20250716
  Serious: No
  Sender: SANOFI AVENTIS
  Company Number: US-SA-2025SA064832

PATIENT
  Age: 15 Year
  Sex: Male

DRUGS (2)
  1. DUPIXENT [Suspect]
     Active Substance: DUPILUMAB
     Indication: Eczema
     Dosage: 300 MG, Q2M
     Route: 058
     Dates: start: 202402
  2. DUPIXENT [Suspect]
     Active Substance: DUPILUMAB
     Dosage: 300 MG, QOW
     Route: 058
     Dates: start: 202402

REACTIONS (6)
  - Rebound eczema [Recovering/Resolving]
  - Rash [Recovering/Resolving]
  - Erythema [Recovering/Resolving]
  - Activities of daily living decreased [Recovering/Resolving]
  - Eczema [Recovered/Resolved]
  - Inappropriate schedule of product administration [Unknown]

NARRATIVE: CASE EVENT DATE: 20240201
